FAERS Safety Report 22905226 (Version 3)
Quarter: 2023Q4

REPORT INFORMATION
  Report Type: Spontaneous
  Country: BR (occurrence: BR)
  Receive Date: 20230905
  Receipt Date: 20231003
  Transmission Date: 20240110
  Serious: No
  Sender: FDA-Public Use
  Company Number: BR-SANDOZ-NVSC2023BR105468

PATIENT
  Sex: Female

DRUGS (5)
  1. ANASTROZOLE [Suspect]
     Active Substance: ANASTROZOLE
     Indication: Breast cancer
     Dosage: UNK
     Route: 065
  2. KISQALI [Suspect]
     Active Substance: RIBOCICLIB
     Dosage: 2 DOSAGE FORM
     Route: 065
     Dates: start: 202307
  3. KISQALI [Suspect]
     Active Substance: RIBOCICLIB
     Dosage: 3,IN THE MORNING
     Route: 065
     Dates: start: 20221222
  4. KISQALI [Suspect]
     Active Substance: RIBOCICLIB
     Indication: Breast cancer
     Dosage: UNK
     Route: 065
  5. KISQALI [Suspect]
     Active Substance: RIBOCICLIB
     Dosage: 3 DOSAGE FORM
     Route: 065
     Dates: start: 202308

REACTIONS (23)
  - Acidosis [Unknown]
  - Memory impairment [Unknown]
  - Lacrimation increased [Unknown]
  - Ocular hyperaemia [Unknown]
  - Feeling hot [Unknown]
  - Dysuria [Unknown]
  - Thermal burn [Unknown]
  - Bone pain [Unknown]
  - Skin discolouration [Unknown]
  - Hair growth abnormal [Unknown]
  - Hot flush [Unknown]
  - Pain in extremity [Unknown]
  - Arthralgia [Unknown]
  - Hyperchlorhydria [Unknown]
  - No adverse event [Unknown]
  - Skin discolouration [Unknown]
  - Anorectal discomfort [Unknown]
  - Tearfulness [Unknown]
  - Flatulence [Unknown]
  - Ocular hyperaemia [Unknown]
  - Head discomfort [Unknown]
  - Urinary tract discomfort [Unknown]
  - Treatment noncompliance [Unknown]
